FAERS Safety Report 8943360 (Version 1)
Quarter: 2012Q4

REPORT INFORMATION
  Report Type: 
  Country: AU (occurrence: AU)
  Receive Date: 20121204
  Receipt Date: 20121204
  Transmission Date: 20130627
  Serious: Yes (Other)
  Sender: FDA-Public Use
  Company Number: AU-AMGEN-AUSSP2012070543

PATIENT
  Age: 57 Year
  Sex: Male

DRUGS (6)
  1. ENBREL [Suspect]
     Indication: RHEUMATOID ARTHRITIS
     Dosage: 50 mg, weekly
     Route: 058
     Dates: start: 201202, end: 201208
  2. PREDNISOLONE [Concomitant]
     Indication: RHEUMATOID ARTHRITIS
     Dosage: 5 mg, 1x/day
     Route: 048
  3. OLMETEC PLUS [Concomitant]
     Indication: HYPERTENSION
     Dosage: 12.5 mg, 1x/day
     Route: 048
  4. CLOPIDOGREL [Concomitant]
     Indication: MYOCARDIAL ISCHAEMIA
     Dosage: 15 mg, UNK
  5. CADUET [Concomitant]
     Dosage: 10mg/40mg daily
     Route: 048
  6. ASASANTIN [Concomitant]
     Dosage: 200 mg, 1x/day
     Route: 048

REACTIONS (3)
  - Mucosal ulceration [Recovered/Resolved]
  - Mucosal inflammation [Recovered/Resolved]
  - Drug ineffective [Unknown]
